FAERS Safety Report 10642932 (Version 1)
Quarter: 2014Q4

REPORT INFORMATION
  Report Type: Spontaneous
  Country: US (occurrence: None)
  Receive Date: 20141121
  Receipt Date: 20141121
  Transmission Date: 20150529
  Serious: No
  Sender: FDA-Public Use
  Company Number: 163-10004-14091764

PATIENT
  Age: 51 Year
  Sex: Male

DRUGS (4)
  1. OTEZLA [Suspect]
     Active Substance: APREMILAST
     Indication: PSORIATIC ARTHROPATHY
     Dosage: THERAPY DATE: ON 20TH DAY - ONGOING, 60 MG, 2 IN 1 D, PO
     Route: 048
  2. CLOBAX (CLOBETASOL PROPIONATE) (UNKNOWN) [Concomitant]
  3. VECTICAL (CALCITROL) (UNKNOWN) [Concomitant]
  4. LIPITOR [Concomitant]
     Active Substance: ATORVASTATIN CALCIUM

REACTIONS (3)
  - Headache [None]
  - Nausea [None]
  - Palpitations [None]
